FAERS Safety Report 4536962-1 (Version None)
Quarter: 2004Q4

REPORT INFORMATION
  Report Type: 
  Country: None (occurrence: None)
  Receive Date: 20041220
  Receipt Date: 20041208
  Transmission Date: 20050328
  Serious: Yes (Disabling)
  Sender: FDA-Public Use
  Company Number: T04-JPN-08110-01

PATIENT
  Age: 86 Year
  Sex: Female

DRUGS (8)
  1. MEMANTINE [Suspect]
     Indication: DEMENTIA ALZHEIMER'S TYPE
     Dosage: 20 MG QD PO
     Route: 048
     Dates: start: 20040330, end: 20040826
  2. FURSULTIAMINE [Concomitant]
  3. LISINOPRIL [Concomitant]
  4. LORMETAZEPAM [Concomitant]
  5. NIFEDIPINE [Concomitant]
  6. GRAMALIL (TIAPRIDE HYDROCHLORIDE) [Concomitant]
  7. SENIRAN (BROMAZEPAM) [Concomitant]
  8. HEAVY MAGNESIUM OXIDE (MAGNESIUM OXIDE HEAVY) [Concomitant]

REACTIONS (4)
  - ABASIA [None]
  - CIRCULATORY COLLAPSE [None]
  - HEMIPLEGIA [None]
  - LACUNAR INFARCTION [None]
